FAERS Safety Report 12178052 (Version 2)
Quarter: 2016Q2

REPORT INFORMATION
  Report Type: Report from Study
  Country: US (occurrence: US)
  Receive Date: 20160315
  Receipt Date: 20160411
  Transmission Date: 20160815
  Serious: No
  Sender: FDA-Public Use
  Company Number: PHEH2016US006073

PATIENT
  Sex: Male
  Weight: 126.98 kg

DRUGS (1)
  1. GILENYA [Suspect]
     Active Substance: FINGOLIMOD HYDROCHLORIDE
     Indication: MULTIPLE SCLEROSIS
     Dosage: 0.5 MG, QD
     Route: 048
     Dates: start: 20151221

REACTIONS (4)
  - Burning sensation [Recovered/Resolved]
  - Headache [Recovered/Resolved]
  - Hypoaesthesia [Recovered/Resolved]
  - Multiple sclerosis relapse [Unknown]
